FAERS Safety Report 5023585-3 (Version None)
Quarter: 2006Q2

REPORT INFORMATION
  Report Type: 
  Country: None (occurrence: None)
  Receive Date: 20060606
  Receipt Date: 20060524
  Transmission Date: 20061013
  Serious: Yes (Hospitalization, Disabling)
  Sender: FDA-Public Use
  Company Number: 151-20785-06060037

PATIENT
  Age: 55 Year
  Sex: Female

DRUGS (4)
  1. THALOMIDE PHARMION (50 MILLIGRAM, CAPSULES) [Suspect]
     Indication: MULTIPLE MYELOMA
     Dosage: 100 MG, DAILY, ORAL; 100 - 200 MG, DAILY, ORAL;  50 MG, DAILY, ORAL
     Route: 048
     Dates: start: 20051101, end: 20051120
  2. THALOMIDE PHARMION (50 MILLIGRAM, CAPSULES) [Suspect]
     Indication: MULTIPLE MYELOMA
     Dosage: 100 MG, DAILY, ORAL; 100 - 200 MG, DAILY, ORAL;  50 MG, DAILY, ORAL
     Route: 048
     Dates: start: 20051121, end: 20051201
  3. THALOMIDE PHARMION (50 MILLIGRAM, CAPSULES) [Suspect]
     Indication: MULTIPLE MYELOMA
     Dosage: 100 MG, DAILY, ORAL; 100 - 200 MG, DAILY, ORAL;  50 MG, DAILY, ORAL
     Route: 048
     Dates: start: 20060101, end: 20060212
  4. DEXAMETHASONE [Suspect]
     Indication: MULTIPLE MYELOMA
     Dates: start: 20051101, end: 20051201

REACTIONS (6)
  - ARTHRITIS BACTERIAL [None]
  - FISTULA [None]
  - JOINT EFFUSION [None]
  - METASTASES TO BONE MARROW [None]
  - MYOSITIS [None]
  - TYPHOID FEVER [None]
